FAERS Safety Report 7683053-7 (Version None)
Quarter: 2011Q3

REPORT INFORMATION
  Report Type: 
  Country: None (occurrence: None)
  Receive Date: 20110815
  Receipt Date: 20110811
  Transmission Date: 20111222
  Serious: Yes (Life-Threatening, Hospitalization)
  Sender: FDA-Public Use
  Company Number: BR-ASTRAZENECA-2011SE47994

PATIENT
  Age: 68 Year
  Sex: Female

DRUGS (2)
  1. ZESTRIL [Suspect]
     Indication: HYPERTENSION
     Route: 048
     Dates: start: 20060101, end: 20110301
  2. ZESTRIL [Suspect]
     Route: 048
     Dates: start: 20110401

REACTIONS (8)
  - DRUG DOSE OMISSION [None]
  - OEDEMA PERIPHERAL [None]
  - BRONCHITIS [None]
  - WEIGHT DECREASED [None]
  - DYSPNOEA [None]
  - COMA [None]
  - PNEUMONIA [None]
  - TOTAL LUNG CAPACITY DECREASED [None]
